FAERS Safety Report 6578578-1 (Version None)
Quarter: 2010Q1

REPORT INFORMATION
  Report Type: 
  Country: None (occurrence: None)
  Receive Date: 20100211
  Receipt Date: 20100202
  Transmission Date: 20100710
  Serious: Yes (Hospitalization)
  Sender: FDA-Public Use
  Company Number: US-ABBOTT-10P-163-0623602-00

PATIENT
  Sex: Female
  Weight: 76.272 kg

DRUGS (5)
  1. HUMIRA [Suspect]
     Indication: CROHN'S DISEASE
     Route: 058
     Dates: start: 20091212
  2. PREDNISONE TAB [Concomitant]
     Indication: CROHN'S DISEASE
     Route: 048
  3. ASACOL [Concomitant]
     Indication: CROHN'S DISEASE
     Dates: start: 20090101
  4. FENTANYL-100 [Concomitant]
     Indication: ABDOMINAL PAIN
     Route: 061
  5. OXYCONTIN [Concomitant]
     Indication: ABDOMINAL PAIN
     Route: 048

REACTIONS (5)
  - ABDOMINAL PAIN [None]
  - DIARRHOEA [None]
  - HAEMATOCHEZIA [None]
  - LOSS OF CONSCIOUSNESS [None]
  - PROCTALGIA [None]
